FAERS Safety Report 25157858 (Version 4)
Quarter: 2025Q2

REPORT INFORMATION
  Report Type: Spontaneous
  Country: US (occurrence: US)
  Receive Date: 20250403
  Receipt Date: 20250422
  Transmission Date: 20250717
  Serious: No
  Sender: Haleon PLC
  Company Number: US-HALEON-2235982

PATIENT
  Sex: Female
  Weight: 90.718 kg

DRUGS (1)
  1. FLONASE ALLERGY RELIEF [Suspect]
     Active Substance: FLUTICASONE PROPIONATE
     Indication: Hypersensitivity
     Route: 045
     Dates: end: 20250318

REACTIONS (3)
  - Headache [Unknown]
  - Irritability [Unknown]
  - Drug effect less than expected [Unknown]
